FAERS Safety Report 16668201 (Version 2)
Quarter: 2019Q3

REPORT INFORMATION
  Report Type: Spontaneous
  Country: US (occurrence: US)
  Receive Date: 20190805
  Receipt Date: 20190815
  Transmission Date: 20191004
  Serious: Yes (Death, Hospitalization, Other)
  Sender: FDA-Public Use
  Company Number: US-PFIZER INC-2019331390

PATIENT
  Age: 22 Month
  Sex: Female

DRUGS (1)
  1. DOXORUBICIN HCL [Suspect]
     Active Substance: DOXORUBICIN HYDROCHLORIDE
     Indication: ATYPICAL TERATOID/RHABDOID TUMOUR OF CNS
     Dosage: UNK

REACTIONS (6)
  - Arrhythmia [Fatal]
  - Tumour lysis syndrome [Fatal]
  - Acute respiratory failure [Fatal]
  - Hyponatraemia [Fatal]
  - Seizure [Fatal]
  - Brain oedema [Fatal]
